FAERS Safety Report 19838425 (Version 1)
Quarter: 2021Q3

REPORT INFORMATION
  Report Type: Spontaneous
  Country: CL (occurrence: CL)
  Receive Date: 20210916
  Receipt Date: 20210916
  Transmission Date: 20211014
  Serious: Yes (Other)
  Sender: FDA-Public Use
  Company Number: CL-B.I. PHARMACEUTICALS,INC./RIDGEFIELD-2021-BI-127219

PATIENT
  Age: 40 Year
  Sex: Male

DRUGS (1)
  1. PRADAXA [Suspect]
     Active Substance: DABIGATRAN ETEXILATE MESYLATE
     Indication: ATRIAL FIBRILLATION

REACTIONS (1)
  - Atrial thrombosis [Unknown]
